FAERS Safety Report 7720393-7 (Version None)
Quarter: 2011Q3

REPORT INFORMATION
  Report Type: 
  Country: None (occurrence: None)
  Receive Date: 20110830
  Receipt Date: 20110830
  Transmission Date: 20111222
  Serious: No
  Sender: FDA-Public Use
  Company Number: None

PATIENT
  Age: 71 Year
  Sex: Female

DRUGS (1)
  1. AUGMENTIN '125' [Suspect]
     Dates: start: 20091113, end: 20091123

REACTIONS (3)
  - CHOLESTATIC LIVER INJURY [None]
  - LIVER DISORDER [None]
  - URINARY TRACT INFECTION [None]
